FAERS Safety Report 6982894-9 (Version None)
Quarter: 2010Q3

REPORT INFORMATION
  Report Type: 
  Country: None (occurrence: None)
  Receive Date: 20100914
  Receipt Date: 20100426
  Transmission Date: 20110219
  Serious: No
  Sender: FDA-Public Use
  Company Number: US-PFIZER INC-2010053254

PATIENT
  Sex: Male
  Weight: 68 kg

DRUGS (7)
  1. LYRICA [Suspect]
     Indication: HERPES ZOSTER
     Dosage: UNK
     Route: 048
     Dates: start: 20080601, end: 20100301
  2. LYRICA [Suspect]
     Indication: ARTHRALGIA
  3. OMEPRAZOLE [Concomitant]
     Dosage: UNK
  4. NORTRIPTYLINE [Concomitant]
     Dosage: UNK
  5. TRAMADOL [Concomitant]
     Dosage: UNK
  6. CITALOPRAM [Concomitant]
     Dosage: UNK
  7. CYCLOBENZAPRINE [Concomitant]
     Dosage: UNK

REACTIONS (3)
  - INSOMNIA [None]
  - PAIN [None]
  - PRURITUS [None]
